FAERS Safety Report 23089805 (Version 1)
Quarter: 2023Q4

REPORT INFORMATION
  Report Type: Report from Study
  Country: MX (occurrence: MX)
  Receive Date: 20231020
  Receipt Date: 20231020
  Transmission Date: 20240110
  Serious: Yes (Life-Threatening, Hospitalization, Other)
  Sender: FDA-Public Use
  Company Number: MX-002147023-NVSC2023MX225223

PATIENT
  Age: 1 Year
  Sex: Female
  Weight: 9 kg

DRUGS (12)
  1. SIMULECT [Suspect]
     Active Substance: BASILIXIMAB
     Indication: Liver transplant
     Dosage: UNK (STARTED AT 5 MONTHS OLD)
     Route: 048
  2. OCTRALIN [Concomitant]
     Indication: Prophylaxis against transplant rejection
     Dosage: 1 UG, Q8H ((IT WAS A TABLET THAT THEY MAKE A SYRUP)
     Route: 048
  3. OCTRALIN [Concomitant]
     Indication: Immunosuppression
  4. TACROLIMUS [Concomitant]
     Active Substance: TACROLIMUS
     Indication: Prophylaxis against transplant rejection
     Dosage: 1 ML, Q8H
     Route: 048
  5. TACROLIMUS [Concomitant]
     Active Substance: TACROLIMUS
     Indication: Immunosuppression
  6. ESOMEPRAZOLE [Concomitant]
     Active Substance: ESOMEPRAZOLE
     Indication: Gastrointestinal disorder
     Dosage: 5 ML, QD ( ENVELOPE THAT DISSOLVES IN WATER)
     Route: 048
  7. ACETAMINOPHEN [Concomitant]
     Active Substance: ACETAMINOPHEN
     Indication: Pain
     Dosage: 100 ML, Q6H
     Route: 048
  8. LACTOBACILLUS REUTERI [Concomitant]
     Active Substance: LACTOBACILLUS REUTERI
     Indication: Product used for unknown indication
     Dosage: 6 UNK, Q12H
     Route: 048
  9. CISAPRIDA [Concomitant]
     Indication: Product used for unknown indication
     Dosage: 2 ML, Q8H
     Route: 048
  10. FOLIC ACID [Concomitant]
     Active Substance: FOLIC ACID
     Indication: Renal disorder
     Dosage: 1 DOSAGE FORM, QD
     Route: 048
  11. MAGNESIUM SULFATE [Concomitant]
     Active Substance: MAGNESIUM SULFATE\MAGNESIUM SULFATE HEPTAHYDRATE
     Indication: Renal disorder
     Dosage: 10 ML, Q8H (TABLET THAT THEY MAKE SYRUP)
     Route: 048
  12. SODIUM BICARBONATE [Concomitant]
     Active Substance: SODIUM BICARBONATE
     Indication: Product used for unknown indication
     Dosage: 4 ML, Q8H (AMPULE)
     Route: 048

REACTIONS (9)
  - Peritonitis [Unknown]
  - Adverse drug reaction [Unknown]
  - Carditis [Unknown]
  - Renal disorder [Unknown]
  - Gastrointestinal disorder [Unknown]
  - Venous thrombosis [Unknown]
  - Medical device site scar [Unknown]
  - Incorrect route of product administration [Unknown]
  - Product use in unapproved indication [Unknown]

NARRATIVE: CASE EVENT DATE: 20231001
